FAERS Safety Report 22656289 (Version 1)
Quarter: 2023Q2

REPORT INFORMATION
  Report Type: Report from Study
  Country: US (occurrence: US)
  Receive Date: 20230629
  Receipt Date: 20230629
  Transmission Date: 20230722
  Serious: No
  Sender: FDA-Public Use
  Company Number: US-002147023-NVSC2023US147565

PATIENT
  Sex: Female
  Weight: 64 kg

DRUGS (8)
  1. CLOBETASOL [Suspect]
     Active Substance: CLOBETASOL
     Indication: Psoriasis
     Dosage: UNK
     Route: 065
  2. COSENTYX [Suspect]
     Active Substance: SECUKINUMAB
     Indication: Psoriasis
     Dosage: UNK
     Route: 065
  3. METHOTREXATE [Suspect]
     Active Substance: METHOTREXATE
     Indication: Psoriasis
     Dosage: UNK
     Route: 065
  4. TRIAMCINOLONE [Suspect]
     Active Substance: TRIAMCINOLONE
     Indication: Psoriasis
     Dosage: UNK
     Route: 065
  5. CALCIPOTRIENE [Suspect]
     Active Substance: CALCIPOTRIENE
     Indication: Psoriasis
     Dosage: UNK
     Route: 065
  6. ISOTRETINOIN [Suspect]
     Active Substance: ISOTRETINOIN
     Indication: Psoriasis
     Dosage: UNK
     Route: 065
  7. BUPROPION [Suspect]
     Active Substance: BUPROPION
     Indication: Psoriasis
     Dosage: UNK
     Route: 065
  8. ACCUTANE [Suspect]
     Active Substance: ISOTRETINOIN
     Indication: Psoriasis
     Dosage: UNK
     Route: 065

REACTIONS (8)
  - Papule [Unknown]
  - Macule [Unknown]
  - Psoriasis [Unknown]
  - Guttate psoriasis [Unknown]
  - Infection [Unknown]
  - Acne [Recovering/Resolving]
  - Folliculitis [Recovering/Resolving]
  - Treatment failure [Unknown]
